FAERS Safety Report 9149435 (Version 1)
Quarter: 2013Q1

REPORT INFORMATION
  Report Type: Spontaneous
  Country: US (occurrence: None)
  Receive Date: 20130228
  Receipt Date: 20130228
  Transmission Date: 20140127
  Serious: Yes (Hospitalization)
  Sender: FDA-Public Use
  Company Number: None

PATIENT
  Age: 53 Year
  Sex: Female
  Weight: 62.3 kg

DRUGS (1)
  1. CIPROFLOXACIN [Suspect]
     Indication: COLITIS
     Dates: start: 20130101, end: 20130103

REACTIONS (4)
  - Vomiting [None]
  - Abdominal abscess [None]
  - Pseudomembranous colitis [None]
  - Diarrhoea [None]
